FAERS Safety Report 16454678 (Version 1)
Quarter: 2019Q2

REPORT INFORMATION
  Report Type: Spontaneous
  Country: US (occurrence: US)
  Receive Date: 20190619
  Receipt Date: 20190619
  Transmission Date: 20190711
  Serious: No
  Sender: FDA-Public Use
  Company Number: US-ROCHE-2145624

PATIENT
  Sex: Female

DRUGS (5)
  1. MARINOL [Concomitant]
     Active Substance: DRONABINOL
  2. TOPIRAMATE. [Concomitant]
     Active Substance: TOPIRAMATE
  3. ATORVASTATIN CALCIUM. [Concomitant]
     Active Substance: ATORVASTATIN CALCIUM
  4. ACTEMRA [Suspect]
     Active Substance: TOCILIZUMAB
     Route: 058
     Dates: start: 20171120
  5. ACTEMRA [Suspect]
     Active Substance: TOCILIZUMAB
     Indication: RHEUMATOID ARTHRITIS
     Route: 058
     Dates: start: 20170628

REACTIONS (2)
  - Fatigue [Unknown]
  - Fine motor skill dysfunction [Unknown]
